FAERS Safety Report 4503994-9 (Version None)
Quarter: 2004Q3

REPORT INFORMATION
  Report Type: 
  Country: None (occurrence: None)
  Receive Date: 20040927
  Receipt Date: 20040629
  Transmission Date: 20050211
  Serious: No
  Sender: FDA-Public Use
  Company Number: USA040671423

PATIENT
  Age: 34 Year
  Sex: Male
  Weight: 80 kg

DRUGS (1)
  1. STRATTERA [Suspect]
     Dosage: 40 MG DAY
     Dates: start: 20040626

REACTIONS (2)
  - FATIGUE [None]
  - MOOD SWINGS [None]
